FAERS Safety Report 17328450 (Version 1)
Quarter: 2020Q1

REPORT INFORMATION
  Report Type: Spontaneous
  Country: PT (occurrence: PT)
  Receive Date: 20200127
  Receipt Date: 20200127
  Transmission Date: 20200409
  Serious: Yes (Disabling)
  Sender: FDA-Public Use
  Company Number: PT-MYLANLABS-2020M1009103

PATIENT
  Age: 71 Year
  Sex: Female

DRUGS (3)
  1. LEVOFLOXACIN. [Suspect]
     Active Substance: LEVOFLOXACIN
     Indication: RESPIRATORY TRACT INFECTION
     Dosage: 1000 MILLIGRAM, QD
     Route: 048
     Dates: start: 20191019, end: 20191029
  2. LEVOFLOXACIN. [Suspect]
     Active Substance: LEVOFLOXACIN
     Dosage: 500 MILLIGRAM, QD
     Route: 048
     Dates: start: 20191019
  3. PREDNISOLONE. [Concomitant]
     Active Substance: PREDNISOLONE
     Indication: PSORIATIC ARTHROPATHY
     Dosage: J? FAZ H? MUITOS ANOS
     Route: 048

REACTIONS (8)
  - Sleep disorder [Recovering/Resolving]
  - Vaginal infection [Recovered/Resolved]
  - Anxiety [Recovering/Resolving]
  - Hyperhidrosis [Not Recovered/Not Resolved]
  - Tachycardia [Recovering/Resolving]
  - Constipation [Recovered/Resolved]
  - Arthralgia [Recovering/Resolving]
  - Product administration error [Unknown]

NARRATIVE: CASE EVENT DATE: 20191021
